FAERS Safety Report 5090801-1 (Version None)
Quarter: 2006Q3

REPORT INFORMATION
  Report Type: 
  Country: None (occurrence: None)
  Receive Date: 20060823
  Receipt Date: 20060810
  Transmission Date: 20061208
  Serious: Yes (Death)
  Sender: FDA-Public Use
  Company Number: 0606-378

PATIENT
  Age: 5 Day
  Sex: Female
  Weight: 0.7 kg

DRUGS (4)
  1. CUROSURF [Suspect]
     Indication: RESPIRATORY DISTRESS
     Dosage: 72 MILLIGRAMS-INTRATRACHEAL
     Route: 039
     Dates: start: 20060530
  2. AMPICILLIN [Concomitant]
  3. GENTAMICIN [Concomitant]
  4. FKYCIBALIKE [Concomitant]

REACTIONS (4)
  - BRADYCARDIA NEONATAL [None]
  - METABOLIC ACIDOSIS [None]
  - NEONATAL DISORDER [None]
  - PNEUMOTHORAX [None]
